FAERS Safety Report 5810488-7 (Version None)
Quarter: 2008Q3

REPORT INFORMATION
  Report Type: 
  Country: None (occurrence: None)
  Receive Date: 20080715
  Receipt Date: 20080707
  Transmission Date: 20090109
  Serious: Yes (Other)
  Sender: FDA-Public Use
  Company Number: JP-ASTRAZENECA-2008AP05240

PATIENT
  Age: 68 Year
  Sex: Female

DRUGS (8)
  1. XYLOCAINE [Suspect]
     Route: 014
     Dates: start: 20080624, end: 20080624
  2. XYLOCAINE [Suspect]
     Route: 014
     Dates: start: 20080701, end: 20080701
  3. SUVENYL [Suspect]
     Route: 014
     Dates: start: 20080624, end: 20080624
  4. SUVENYL [Suspect]
     Route: 014
     Dates: start: 20080701, end: 20080701
  5. HYPEN [Suspect]
     Route: 048
     Dates: start: 20080624, end: 20080703
  6. BOIOGITO [Suspect]
     Route: 048
     Dates: start: 20080624, end: 20080703
  7. MUCOSTA [Suspect]
     Route: 048
     Dates: start: 20080624, end: 20080703
  8. MOHRUS TAPE [Suspect]
     Dosage: DOSE UNKNOWN
     Route: 062
     Dates: start: 20080624, end: 20080703

REACTIONS (1)
  - STEVENS-JOHNSON SYNDROME [None]
